FAERS Safety Report 20552369 (Version 1)
Quarter: 2022Q1

REPORT INFORMATION
  Report Type: Spontaneous
  Country: GB (occurrence: GB)
  Receive Date: 20220304
  Receipt Date: 20220304
  Transmission Date: 20220424
  Serious: Yes (Congenital Anomaly, Other)
  Sender: FDA-Public Use
  Company Number: GB-ABBVIE-22K-167-4297880-00

PATIENT
  Sex: Female

DRUGS (6)
  1. EPILIM [Suspect]
     Active Substance: VALPROATE SODIUM
     Indication: Maternal exposure timing unspecified
     Route: 064
  2. SIMVASTATIN [Concomitant]
     Active Substance: SIMVASTATIN
     Indication: Maternal exposure timing unspecified
  3. LANTUS [Concomitant]
     Active Substance: INSULIN GLARGINE
     Indication: Maternal exposure timing unspecified
  4. LEVOTHYROXINE SODIUM [Concomitant]
     Active Substance: LEVOTHYROXINE SODIUM
     Indication: Maternal exposure timing unspecified
  5. PROPRANOLOL [Concomitant]
     Active Substance: PROPRANOLOL HYDROCHLORIDE
     Indication: Maternal exposure timing unspecified
  6. INSULIN LISPRO [Concomitant]
     Active Substance: INSULIN LISPRO
     Indication: Maternal exposure timing unspecified

REACTIONS (5)
  - Epilepsy [Unknown]
  - Ventricular septal defect [Unknown]
  - Rubinstein-Taybi syndrome [Unknown]
  - Learning disorder [Unknown]
  - Foetal exposure during pregnancy [Unknown]
